FAERS Safety Report 21939707 (Version 1)
Quarter: 2023Q1

REPORT INFORMATION
  Report Type: Spontaneous
  Country: DE (occurrence: DE)
  Receive Date: 20230201
  Receipt Date: 20230201
  Transmission Date: 20230417
  Serious: No
  Sender: FDA-Public Use
  Company Number: DE-EXELIXIS-CABO-22048613

PATIENT
  Sex: Male

DRUGS (1)
  1. CABOMETYX [Suspect]
     Active Substance: CABOZANTINIB S-MALATE
     Indication: Neoplasm
     Dosage: 60 MG
     Dates: start: 202112

REACTIONS (5)
  - Aphthous ulcer [Unknown]
  - Alopecia [Unknown]
  - Epistaxis [Unknown]
  - Hair colour changes [Unknown]
  - Dry skin [Unknown]
